FAERS Safety Report 17017759 (Version 1)
Quarter: 2019Q4

REPORT INFORMATION
  Report Type: Spontaneous
  Country: FR (occurrence: FR)
  Receive Date: 20191111
  Receipt Date: 20191111
  Transmission Date: 20200122
  Serious: Yes (Other)
  Sender: FDA-Public Use
  Company Number: FR-MYLANLABS-2019M1079623

PATIENT
  Age: 34 Year
  Sex: Female
  Weight: 60 kg

DRUGS (1)
  1. PACLITAXEL. [Suspect]
     Active Substance: PACLITAXEL
     Indication: INVASIVE DUCTAL BREAST CARCINOMA
     Dosage: 137.6 MILLIGRAM, QW
     Route: 041
     Dates: start: 20190318, end: 20190429

REACTIONS (2)
  - Neuropathy peripheral [Recovered/Resolved]
  - Nail toxicity [Recovered/Resolved]

NARRATIVE: CASE EVENT DATE: 201905
